FAERS Safety Report 11631931 (Version 3)
Quarter: 2016Q3

REPORT INFORMATION
  Report Type: Spontaneous
  Country: US (occurrence: US)
  Receive Date: 20151015
  Receipt Date: 20160729
  Transmission Date: 20161109
  Serious: No
  Sender: FDA-Public Use
  Company Number: US-GLENMARK PHARMACEUTICALS INC, USA.-2015GMK014581

PATIENT
  Age: 69 Year
  Sex: Female

DRUGS (8)
  1. NORTRIPTYLIN [Suspect]
     Active Substance: NORTRIPTYLINE
     Indication: PAIN IN EXTREMITY
     Dosage: UNK
  2. AMITRIPTYLIN [Suspect]
     Active Substance: AMITRIPTYLINE
     Indication: PAIN IN EXTREMITY
     Dosage: UNK
  3. LIDOCAINE. [Suspect]
     Active Substance: LIDOCAINE
     Indication: PAIN IN EXTREMITY
     Dosage: UNK
  4. PRAMIPEXOLE. [Suspect]
     Active Substance: PRAMIPEXOLE
     Indication: PAIN IN EXTREMITY
     Dosage: UNK
  5. OXYCODONE [Suspect]
     Active Substance: OXYCODONE
     Indication: PAIN IN EXTREMITY
     Dosage: UNK
  6. GABAPENTIN. [Suspect]
     Active Substance: GABAPENTIN
     Indication: PAIN IN EXTREMITY
     Dosage: UNK
  7. DIAZEPAM. [Suspect]
     Active Substance: DIAZEPAM
     Indication: PAIN IN EXTREMITY
     Dosage: UNK
  8. CELECOXIB. [Suspect]
     Active Substance: CELECOXIB
     Indication: PAIN IN EXTREMITY
     Dosage: UNK

REACTIONS (1)
  - Off label use [Unknown]
